FAERS Safety Report 11052956 (Version 1)
Quarter: 2015Q2

REPORT INFORMATION
  Report Type: Report from Study
  Country: JP (occurrence: None)
  Receive Date: 20150417
  Receipt Date: 20150417
  Transmission Date: 20150821
  Serious: Yes (Other)
  Sender: FDA-Public Use
  Company Number: JP2015JPN045302

PATIENT
  Age: 59 Year
  Sex: Male

DRUGS (7)
  1. ISENTRESS [Suspect]
     Active Substance: RALTEGRAVIR POTASSIUM
     Indication: HIV INFECTION
     Route: 048
     Dates: start: 20140920
  2. CROSS EIGHT M (FACTOR VIII) [Concomitant]
  3. FEBURIC (FEBUXOSTAT) [Concomitant]
     Active Substance: FEBUXOSTAT
  4. BLOPRESS (CANDESARTAN CILEXETIL) [Concomitant]
     Active Substance: CANDESARTAN CILEXETIL
  5. EPZICOM [Suspect]
     Active Substance: ABACAVIR SULFATE\LAMIVUDINE
     Indication: HIV INFECTION
     Route: 048
     Dates: start: 20140401
  6. MAINTATE (BISOPROLOL FUMARATE) [Concomitant]
  7. TIVICAY [Suspect]
     Active Substance: DOLUTEGRAVIR SODIUM
     Indication: HIV INFECTION
     Route: 048
     Dates: start: 20140502, end: 20140919

REACTIONS (1)
  - Renal impairment [None]

NARRATIVE: CASE EVENT DATE: 20140919
